FAERS Safety Report 4638522-0 (Version None)
Quarter: 2005Q2

REPORT INFORMATION
  Report Type: 
  Country: None (occurrence: None)
  Receive Date: 20050418
  Receipt Date: 20050418
  Transmission Date: 20051028
  Serious: No
  Sender: FDA-Public Use
  Company Number: None

PATIENT
  Sex: Female
  Weight: 73 kg

DRUGS (8)
  1. ALLOPURINOL [Suspect]
     Indication: ACUTE LYMPHOCYTIC LEUKAEMIA
     Dosage: 300 MG PO QD ON DAYS 1-14
     Route: 048
     Dates: start: 20050331
  2. CYCLOPHOSPHAMIDE [Suspect]
     Dosage: SEE IMAGE
     Route: 042
  3. DAUNORUBICIN HCL [Suspect]
     Dosage: 80 MG/M2/DAY X 3 DAYS IV ON DAYS 1,2,3
     Route: 042
  4. VINCRISTINE [Suspect]
     Dosage: 2 MG IVP ON DAYS 1,8,15,22
     Route: 042
  5. DEXAMETHASONE [Suspect]
     Dosage: 5 MG/M2 PO BID ON DAYS 1-7 AND 15-21 SEE IMAGE
     Route: 048
  6. ELSPAR [Suspect]
     Dosage: SEE IMAGE
     Route: 058
  7. G-CSF [Suspect]
     Dosage: SEE IMAGE
     Route: 058
  8. METHOTREXATE [Suspect]
     Dosage: SEE IMAGE
     Route: 037

REACTIONS (5)
  - BLOOD CULTURE POSITIVE [None]
  - HYPERBILIRUBINAEMIA [None]
  - HYPOTENSION [None]
  - PNEUMONIA KLEBSIELLA [None]
  - SEPSIS [None]
